FAERS Safety Report 16045205 (Version 1)
Quarter: 2019Q1

REPORT INFORMATION
  Report Type: Report from Study
  Country: US (occurrence: US)
  Receive Date: 20190307
  Receipt Date: 20190307
  Transmission Date: 20190418
  Serious: Yes (Hospitalization)
  Sender: FDA-Public Use
  Company Number: US-BRISTOL-MYERS SQUIBB COMPANY-BMS-2019-022622

PATIENT
  Age: 79 Year
  Sex: Male
  Weight: 101.4 kg

DRUGS (1)
  1. NIVOLUMAB [Suspect]
     Active Substance: NIVOLUMAB
     Indication: CHOLANGIOCARCINOMA
     Dosage: 480 MG, Q4WK
     Route: 041
     Dates: start: 20170906, end: 20190130

REACTIONS (1)
  - Biliary tract disorder [Unknown]

NARRATIVE: CASE EVENT DATE: 20190220
